FAERS Safety Report 9900269 (Version 1)
Quarter: 2014Q1

REPORT INFORMATION
  Report Type: Spontaneous
  Country: US (occurrence: US)
  Receive Date: 20140215
  Receipt Date: 20140215
  Transmission Date: 20141002
  Serious: Yes (Hospitalization)
  Sender: FDA-Public Use
  Company Number: US-ASTRAZENECA-2014SE09247

PATIENT
  Age: 60 Year
  Sex: Female

DRUGS (4)
  1. BRILINTA [Suspect]
     Indication: ACUTE CORONARY SYNDROME
     Route: 048
  2. BRILINTA [Suspect]
     Indication: STENT PLACEMENT
     Route: 048
  3. BRILINTA [Suspect]
     Indication: ACUTE CORONARY SYNDROME
     Route: 048
  4. BRILINTA [Suspect]
     Indication: STENT PLACEMENT
     Route: 048

REACTIONS (1)
  - Dyspnoea [Recovered/Resolved]
